FAERS Safety Report 9100138 (Version 1)
Quarter: 2013Q1

REPORT INFORMATION
  Report Type: Spontaneous
  Country: US (occurrence: US)
  Receive Date: 20130215
  Receipt Date: 20130215
  Transmission Date: 20140127
  Serious: No
  Sender: FDA-Public Use
  Company Number: US-PFIZER INC-2013057714

PATIENT
  Age: 67 Year
  Sex: Male

DRUGS (3)
  1. NORVASC [Suspect]
     Indication: HYPERTENSION
     Dosage: 2.5 MG, UNK
     Dates: start: 2012
  2. NORVASC [Suspect]
     Dosage: 5 MG, 1X/DAY
  3. NORVASC [Suspect]
     Dosage: 10 MG, UNK

REACTIONS (1)
  - Drug ineffective [Unknown]
